FAERS Safety Report 8249169 (Version 7)
Quarter: 2015Q2

REPORT INFORMATION
  Report Type: Report from Study
  Country: JP (occurrence: JP)
  Receive Date: 20111117
  Receipt Date: 20150407
  Transmission Date: 20150821
  Serious: Yes (Other)
  Sender: FDA-Public Use
  Company Number: JP-TEVA-309088USA

PATIENT
  Age: 27 Year
  Sex: Male

DRUGS (16)
  1. MUCOSTA [Concomitant]
     Active Substance: REBAMIPIDE
     Dosage: 300 MILLIGRAM DAILY;
     Route: 048
     Dates: start: 20080403
  2. SYMMETREL [Concomitant]
     Active Substance: AMANTADINE HYDROCHLORIDE
     Dosage: 150 MILLIGRAM DAILY;
     Route: 048
     Dates: start: 20080403
  3. TEGRETOL [Concomitant]
     Active Substance: CARBAMAZEPINE
     Dosage: 400 MILLIGRAM DAILY;
     Route: 048
     Dates: start: 20080403
  4. SEROQUEL [Concomitant]
     Active Substance: QUETIAPINE FUMARATE
     Dosage: 100 MILLIGRAM DAILY;
     Route: 048
     Dates: start: 20080403
  5. METHYCOBAL [Concomitant]
     Active Substance: METHYLCOBALAMIN
     Dosage: 1500 G/DAY
     Route: 048
     Dates: start: 20111014
  6. PORTOLAC [Concomitant]
     Active Substance: LACTITOL
     Dosage: 36 GRAM DAILY;
     Route: 048
     Dates: start: 20080403
  7. DANTRIUM [Concomitant]
     Active Substance: DANTROLENE SODIUM
     Dosage: 75 MILLIGRAM DAILY;
     Route: 048
     Dates: start: 20080403
  8. GASTER [Concomitant]
     Active Substance: FAMOTIDINE
     Dosage: 2 GRAM DAILY;
     Route: 048
     Dates: start: 20080403
  9. AKINETON [Concomitant]
     Active Substance: BIPERIDEN HYDROCHLORIDE
     Dosage: 6 MILLIGRAM DAILY;
     Route: 048
     Dates: start: 20080403
  10. LOXONIN [Concomitant]
     Active Substance: LOXOPROFEN SODIUM
     Route: 048
     Dates: start: 20080403
  11. ZINC ACETATE 25 MG AND 50 MG CAPSULES [Suspect]
     Active Substance: ZINC ACETATE
     Indication: HEPATO-LENTICULAR DEGENERATION
     Dosage: 150 MILLIGRAM DAILY;
     Route: 048
     Dates: start: 20101003
  12. MADOPAR [Concomitant]
     Active Substance: BENSERAZIDE HYDROCHLORIDE\LEVODOPA
     Route: 048
     Dates: start: 20080403
  13. ARTANE [Concomitant]
     Active Substance: TRIHEXYPHENIDYL HYDROCHLORIDE
     Dosage: 8 MILLIGRAM DAILY;
     Route: 048
     Dates: start: 20080403
  14. SERENACE [Concomitant]
     Active Substance: HALOPERIDOL
     Dosage: 18 MILLIGRAM DAILY;
     Route: 048
     Dates: start: 20080403
  15. REQUIP [Concomitant]
     Active Substance: ROPINIROLE HYDROCHLORIDE
     Dosage: 8 MILLIGRAM DAILY;
     Route: 048
     Dates: start: 20080403
  16. FOLIAMIN [Concomitant]
     Active Substance: FOLIC ACID
     Dosage: 15 MILLIGRAM DAILY;
     Route: 048
     Dates: start: 20111014

REACTIONS (1)
  - Myelodysplastic syndrome [Unknown]

NARRATIVE: CASE EVENT DATE: 20110930
